FAERS Safety Report 20869658 (Version 2)
Quarter: 2022Q2

REPORT INFORMATION
  Report Type: Report from Study
  Country: CN (occurrence: CN)
  Receive Date: 20220525
  Receipt Date: 20220607
  Transmission Date: 20220720
  Serious: Yes (Death, Hospitalization, Other)
  Sender: FDA-Public Use
  Company Number: CN-BRISTOL-MYERS SQUIBB COMPANY-2022-026414

PATIENT
  Age: 63 Year
  Sex: Female
  Weight: 71 kg

DRUGS (10)
  1. AZACITIDINE [Suspect]
     Active Substance: AZACITIDINE
     Indication: Myelodysplastic syndrome
     Dosage: 7 DAYS WITHIN THE FIRST 9 CALENDAR DAYS OF EACH 28D CYCLE (75 MG/M2)
     Route: 030
     Dates: start: 20220222
  2. REBAMIPIDE [Concomitant]
     Active Substance: REBAMIPIDE
     Indication: Gastritis erosive
     Dosage: 0.3 GM (0.1 GM,3 IN 1 D)
     Route: 048
     Dates: start: 20220222, end: 20220309
  3. ALLOPURINOL [Concomitant]
     Active Substance: ALLOPURINOL
     Indication: Urine alkalinisation therapy
     Dosage: 3 IN 1 D
     Route: 048
     Dates: start: 20220222, end: 20220303
  4. DOLASETRON MESYLATE [Concomitant]
     Active Substance: DOLASETRON MESYLATE
     Indication: Vomiting
     Dosage: 1 IN 1 D
     Dates: start: 20220222, end: 20220228
  5. OMEPRAZOLE SODIUM [Concomitant]
     Active Substance: OMEPRAZOLE SODIUM
     Indication: Gastric ulcer
     Dosage: 1 IN 1 D
     Dates: start: 20220222, end: 20220225
  6. JIE QING [Concomitant]
     Indication: Infection
     Dosage: 2 IN 1 D
     Dates: start: 20220222, end: 20220303
  7. JIE QING [Concomitant]
     Indication: Antiinflammatory therapy
  8. TINIDAZOLE [Concomitant]
     Active Substance: TINIDAZOLE
     Indication: Oral infection
     Dosage: 6 ML (2 ML,3 IN 1 D)
     Route: 048
     Dates: start: 20220222, end: 20220303
  9. MONOAMMONIUM GLYCYRRHIZINATE AND CYSTEINE AND SODIUM CHLORIDE [CYSTEIN [Concomitant]
     Indication: Hepatobiliary disorder prophylaxis
     Route: 042
     Dates: start: 20220222, end: 20220228
  10. LEVOCARNITINE [Concomitant]
     Active Substance: LEVOCARNITINE
     Indication: Fluid replacement
     Route: 067
     Dates: start: 20220222, end: 20220228

REACTIONS (2)
  - Infection [Fatal]
  - Upper gastrointestinal haemorrhage [Not Recovered/Not Resolved]

NARRATIVE: CASE EVENT DATE: 20220224
